FAERS Safety Report 5950802-5 (Version None)
Quarter: 2008Q4

REPORT INFORMATION
  Report Type: 
  Country: None (occurrence: None)
  Receive Date: 20081022
  Receipt Date: 20080815
  Transmission Date: 20090506
  Serious: No
  Sender: FDA-Public Use
  Company Number: ALL1-2008-02311

PATIENT
  Age: 15 Year
  Sex: Female
  Weight: 56.7 kg

DRUGS (2)
  1. VYVANSE [Suspect]
     Dosage: 50 MG,ORAL
     Route: 048
     Dates: start: 20080807, end: 20080814
  2. HUMAN PAPILLOMA VIRUS VACCINE [Concomitant]

REACTIONS (4)
  - INFLUENZA LIKE ILLNESS [None]
  - NAUSEA [None]
  - OFF LABEL USE [None]
  - PAIN IN EXTREMITY [None]
